FAERS Safety Report 14797395 (Version 1)
Quarter: 2018Q2

REPORT INFORMATION
  Report Type: Spontaneous
  Country: US (occurrence: US)
  Receive Date: 20180424
  Receipt Date: 20180424
  Transmission Date: 20180711
  Serious: Yes (Other)
  Sender: FDA-Public Use
  Company Number: US-TEVA-757514USA

PATIENT
  Sex: Female

DRUGS (2)
  1. FAMOTIDINE. [Suspect]
     Active Substance: FAMOTIDINE
     Indication: GASTROOESOPHAGEAL REFLUX DISEASE
     Dosage: TOOK 2 PILLS
     Route: 065
     Dates: start: 20170402
  2. DULOXETINE. [Suspect]
     Active Substance: DULOXETINE
     Indication: AUTOIMMUNE THYROIDITIS
     Route: 065
     Dates: start: 201611

REACTIONS (7)
  - Urticaria [Not Recovered/Not Resolved]
  - Angioedema [Unknown]
  - Drug ineffective [Unknown]
  - Rash [Unknown]
  - Oedema [Recovering/Resolving]
  - Oropharyngeal pain [Unknown]
  - Dysphonia [Unknown]

NARRATIVE: CASE EVENT DATE: 201611
